FAERS Safety Report 13898502 (Version 2)
Quarter: 2017Q3

REPORT INFORMATION
  Report Type: Report from Study
  Country: JP (occurrence: JP)
  Receive Date: 20170824
  Receipt Date: 20170824
  Transmission Date: 20171127
  Serious: Yes (Death)
  Sender: FDA-Public Use
  Company Number: JP-BAYER-2017-155182

PATIENT

DRUGS (2)
  1. TICLOPIDINE [Interacting]
     Active Substance: TICLOPIDINE
     Indication: ANTICOAGULANT THERAPY
  2. ASPIRIN. [Suspect]
     Active Substance: ASPIRIN
     Indication: ANTIPLATELET THERAPY
     Dosage: 81-325 MG DAILY

REACTIONS (3)
  - Labelled drug-drug interaction medication error [Fatal]
  - Drug administration error [Fatal]
  - Retroperitoneal haemorrhage [Fatal]
